FAERS Safety Report 7981080-3 (Version None)
Quarter: 2011Q4

REPORT INFORMATION
  Report Type: 
  Country: None (occurrence: None)
  Receive Date: 20111215
  Receipt Date: 20090715
  Transmission Date: 20120403
  Serious: No
  Sender: FDA-Public Use
  Company Number: 2009BI022120

PATIENT
  Sex: Female

DRUGS (1)
  1. TYSABRI [Suspect]
     Indication: MULTIPLE SCLEROSIS
     Route: 042
     Dates: start: 20090710

REACTIONS (11)
  - URINARY INCONTINENCE [None]
  - DRY MOUTH [None]
  - GAIT DISTURBANCE [None]
  - RHEUMATOID ARTHRITIS [None]
  - FATIGUE [None]
  - TYPE 2 DIABETES MELLITUS [None]
  - KIDNEY INFECTION [None]
  - GLAUCOMA [None]
  - CHEST PAIN [None]
  - PAIN [None]
  - CONSTIPATION [None]
